FAERS Safety Report 6012664-X (Version None)
Quarter: 2008Q4

REPORT INFORMATION
  Report Type: 
  Country: None (occurrence: None)
  Receive Date: 20081209
  Receipt Date: 20081126
  Transmission Date: 20090506
  Serious: Yes (Hospitalization)
  Sender: FDA-Public Use
  Company Number: THYM-1000829

PATIENT
  Age: 40 Year
  Sex: Male
  Weight: 73 kg

DRUGS (1)
  1. THYMOGLOBULINE (ANTI-THYMOCYTE GLOBULIN (RABBIT) POWDER FOR SOLUTION F [Suspect]
     Indication: APLASTIC ANAEMIA
     Dosage: 3.5 MG/KG, QD, INTRAVENOUS
     Route: 042
     Dates: start: 20081010, end: 20081014

REACTIONS (6)
  - DYSPHAGIA [None]
  - MUCOSAL INFLAMMATION [None]
  - NEPHRITIS [None]
  - NEUTROPENIA [None]
  - SERUM SICKNESS [None]
  - THROMBOCYTOPENIA [None]
